FAERS Safety Report 9486254 (Version 2)
Quarter: 2013Q3

REPORT INFORMATION
  Report Type: Report from Study
  Country: ES (occurrence: ES)
  Receive Date: 20130829
  Receipt Date: 20130829
  Transmission Date: 20140515
  Serious: Yes (Other)
  Sender: FDA-Public Use
  Company Number: ES-PFIZER INC-2013219070

PATIENT
  Age: 76 Year
  Sex: Male

DRUGS (3)
  1. CRIZOTINIB [Suspect]
     Indication: LUNG ADENOCARCINOMA
     Dosage: 250 MG, 2X/DAY
     Route: 048
     Dates: start: 201305, end: 20130530
  2. CRIZOTINIB [Suspect]
     Dosage: 200 MG, 2X/DAY
     Route: 048
     Dates: start: 20130531, end: 20130620
  3. CRIZOTINIB [Suspect]
     Dosage: 200 MG, 1X/DAY
     Route: 048
     Dates: end: 20130718

REACTIONS (1)
  - Renal failure [Recovering/Resolving]
